FAERS Safety Report 17251231 (Version 1)
Quarter: 2020Q1

REPORT INFORMATION
  Report Type: Spontaneous
  Country: US (occurrence: US)
  Receive Date: 20200109
  Receipt Date: 20200109
  Transmission Date: 20200409
  Serious: Yes (Hospitalization)
  Sender: FDA-Public Use
  Company Number: US-EISAI MEDICAL RESEARCH-EC-2020-067939

PATIENT
  Age: 61 Year
  Sex: Female

DRUGS (2)
  1. KEYTRUDA [Suspect]
     Active Substance: PEMBROLIZUMAB
     Indication: METASTATIC UTERINE CANCER
     Dosage: DOSE UNKNOWN
     Route: 041
     Dates: start: 20191105, end: 201912
  2. LENVIMA [Suspect]
     Active Substance: LENVATINIB
     Indication: METASTATIC UTERINE CANCER
     Route: 048
     Dates: start: 20191115, end: 20191212

REACTIONS (2)
  - Spinal cord compression [Not Recovered/Not Resolved]
  - Malignant neoplasm progression [Not Recovered/Not Resolved]

NARRATIVE: CASE EVENT DATE: 20191212
